FAERS Safety Report 5526821-X (Version None)
Quarter: 2007Q4

REPORT INFORMATION
  Report Type: 
  Country: None (occurrence: None)
  Receive Date: 20071127
  Receipt Date: 20071115
  Transmission Date: 20080405
  Serious: Yes (Hospitalization)
  Sender: FDA-Public Use
  Company Number: JP-PFIZER INC-2007096739

PATIENT
  Age: 71 Year
  Sex: Female

DRUGS (1)
  1. ZITHROMAX [Suspect]
     Dosage: DAILY DOSE:500MG
     Route: 048
     Dates: start: 20071018, end: 20071020

REACTIONS (1)
  - LUNG DISORDER [None]
